FAERS Safety Report 9485242 (Version 2)
Quarter: 2013Q3

REPORT INFORMATION
  Report Type: Spontaneous
  Country: AU (occurrence: AU)
  Receive Date: 20130828
  Receipt Date: 20130909
  Transmission Date: 20140515
  Serious: Yes (Disabling, Other)
  Sender: FDA-Public Use
  Company Number: AU-BAXTER-2013BAX033335

PATIENT
  Age: 63 Year
  Sex: Female

DRUGS (2)
  1. KIOVIG NORMAL IMMUNOGLOBULIN (HUMAN) 5G/50ML FOR INTRAVENOUS USE INJEC [Suspect]
     Indication: IMMUNODEFICIENCY COMMON VARIABLE
     Route: 042
     Dates: start: 20130821, end: 20130821
  2. KIOVIG NORMAL IMMUNOGLOBULIN (HUMAN) 5G/50ML FOR INTRAVENOUS USE INJEC [Suspect]
     Indication: PLASMA CELL MYELOMA

REACTIONS (8)
  - Dyspnoea [Recovered/Resolved]
  - Chills [Recovered/Resolved]
  - Nausea [Recovered/Resolved]
  - Pain [Recovered/Resolved]
  - Pyrexia [Recovered/Resolved]
  - Wheezing [Recovered/Resolved]
  - Tachypnoea [Recovered/Resolved]
  - Hypoxia [Recovered/Resolved]
